FAERS Safety Report 20926430 (Version 1)
Quarter: 2022Q2

REPORT INFORMATION
  Report Type: Spontaneous
  Country: US (occurrence: US)
  Receive Date: 20220607
  Receipt Date: 20220607
  Transmission Date: 20220720
  Serious: No
  Sender: FDA-Public Use
  Company Number: US-ORGANON-O2206USA000406

PATIENT
  Sex: Female

DRUGS (8)
  1. FOLLISTIM AQ [Suspect]
     Active Substance: FOLLITROPIN
     Indication: Infertility female
     Dosage: 300 IU/0.36 ML / INJECT 300 UNITS UNDER THE SKIN (SUBCUTANEOUS INJECTION) ONCE DAILY
     Route: 058
     Dates: start: 20211217
  2. ANDRODERM [Concomitant]
     Active Substance: TESTOSTERONE
     Dosage: UNK
  3. ESTRADIOL VALERATE [Concomitant]
     Active Substance: ESTRADIOL VALERATE
     Dosage: UNK
  4. GANIRELIX ACETATE [Concomitant]
     Active Substance: GANIRELIX ACETATE
     Dosage: UNK
  5. MENOPUR [Concomitant]
     Active Substance: FOLLITROPIN\LUTEINIZING HORMONE
     Dosage: UNK
  6. PREGNYL [Concomitant]
     Active Substance: CHORIOGONADOTROPIN ALFA
     Dosage: UNK
  7. WATER FOR INJECTION [Concomitant]
     Active Substance: WATER
     Dosage: UNK
  8. PROGESTERONE [Concomitant]
     Active Substance: PROGESTERONE
     Dosage: UNK

REACTIONS (1)
  - Injection site bruising [Unknown]
